FAERS Safety Report 4943743-3 (Version None)
Quarter: 2006Q1

REPORT INFORMATION
  Report Type: 
  Country: None (occurrence: None)
  Receive Date: 20060310
  Receipt Date: 20060228
  Transmission Date: 20060701
  Serious: Yes (Death, Life-Threatening)
  Sender: FDA-Public Use
  Company Number: 2006022422

PATIENT
  Age: 57 Year
  Sex: Female
  Weight: 50 kg

DRUGS (2)
  1. METHYLPREDNISOLONE [Suspect]
     Indication: ILL-DEFINED DISORDER
     Dosage: 50 MG, 12, 3, 1 HR PRE TAXOTERE, 12,24,36 HRS POST), ORAL
     Route: 048
     Dates: start: 20060105, end: 20060107
  2. TAXOTERE [Suspect]
     Indication: BREAST CANCER
     Dosage: 150 MG, INTRAVENOUS
     Route: 042
     Dates: start: 20060105, end: 20060105

REACTIONS (10)
  - BACTERIAL TEST POSITIVE [None]
  - BLOOD CREATINE PHOSPHOKINASE INCREASED [None]
  - CARDIAC ARREST [None]
  - CYTOLYTIC HEPATITIS [None]
  - DISSEMINATED INTRAVASCULAR COAGULATION [None]
  - GANGRENE [None]
  - HAEMATOMA [None]
  - HAEMOGLOBIN DECREASED [None]
  - OEDEMA PERIPHERAL [None]
  - RENAL FAILURE ACUTE [None]
